FAERS Safety Report 4660051-9 (Version None)
Quarter: 2005Q2

REPORT INFORMATION
  Report Type: 
  Country: None (occurrence: None)
  Receive Date: 20050512
  Receipt Date: 20050506
  Transmission Date: 20051028
  Serious: Yes (Hospitalization)
  Sender: FDA-Public Use
  Company Number: US-JNJFOC-20050501858

PATIENT
  Sex: Female
  Weight: 54.43 kg

DRUGS (2)
  1. CONCERTA [Suspect]
     Indication: NARCOLEPSY
     Dosage: THREE 18 MG TABLETS
     Route: 049
  2. PROVIGIL [Concomitant]
     Indication: DRUG USE FOR UNKNOWN INDICATION

REACTIONS (5)
  - MACULAR HOLE [None]
  - OFF LABEL USE [None]
  - OPTIC NERVE DISORDER [None]
  - RETINAL DETACHMENT [None]
  - VISION BLURRED [None]
